FAERS Safety Report 4805530-6 (Version None)
Quarter: 2005Q4

REPORT INFORMATION
  Report Type: 
  Country: None (occurrence: None)
  Receive Date: 20051018
  Receipt Date: 20051003
  Transmission Date: 20060501
  Serious: Yes (Hospitalization)
  Sender: FDA-Public Use
  Company Number: S05-USA-04567-01

PATIENT
  Age: 56 Year
  Sex: Female
  Weight: 52.1637 kg

DRUGS (2)
  1. THEOPHYLLINE [Suspect]
     Indication: ASTHMA
     Dosage: 200 MG TID PO
     Route: 048
     Dates: start: 19750101, end: 20041201
  2. OXYCODONE [Concomitant]

REACTIONS (4)
  - CYSTITIS INTERSTITIAL [None]
  - HYPERHIDROSIS [None]
  - URINARY TRACT INFECTION [None]
  - WEIGHT DECREASED [None]
